FAERS Safety Report 24111770 (Version 3)
Quarter: 2024Q3

REPORT INFORMATION
  Report Type: Spontaneous
  Country: US (occurrence: US)
  Receive Date: 20240718
  Receipt Date: 20240909
  Transmission Date: 20241016
  Serious: No
  Sender: SANOFI AVENTIS
  Company Number: US-SA-SAC20240715001239

PATIENT
  Age: 66 Year
  Sex: Male

DRUGS (1)
  1. DUPIXENT [Suspect]
     Active Substance: DUPILUMAB
     Indication: Eczema
     Dosage: 300 MG, PRN
     Route: 058
     Dates: start: 2024

REACTIONS (2)
  - Eczema [Unknown]
  - Off label use [Unknown]

NARRATIVE: CASE EVENT DATE: 20240101
